FAERS Safety Report 10329679 (Version 1)
Quarter: 2014Q3

REPORT INFORMATION
  Report Type: Report from Study
  Country: GB (occurrence: GB)
  Receive Date: 20140721
  Receipt Date: 20140721
  Transmission Date: 20150326
  Serious: Yes (Death)
  Sender: FDA-Public Use
  Company Number: GB-ASTELLAS-2014US008562

PATIENT
  Age: 63 Year
  Sex: Female

DRUGS (5)
  1. DOMPERIDONE [Concomitant]
     Active Substance: DOMPERIDONE
     Indication: BRONCHIAL CARCINOMA
     Dosage: 20 UNK, UNKNOWN FREQ.
     Route: 048
     Dates: start: 20121012
  2. ERLOTINIB [Suspect]
     Active Substance: ERLOTINIB
  3. ERLOTINIB [Suspect]
     Active Substance: ERLOTINIB
     Indication: BRONCHIAL CARCINOMA
     Dosage: 150 UNK, ONCE DAILY
     Route: 048
  4. DIPROBASE                          /01132701/ [Concomitant]
     Indication: PRODUCT USED FOR UNKNOWN INDICATION
     Dosage: UNK UNK, UNKNOWN FREQ.
     Route: 065
  5. LOPERAMIDE [Concomitant]
     Active Substance: LOPERAMIDE
     Indication: BRONCHIAL CARCINOMA
     Dosage: 2 UNK, UNKNOWN FREQ.
     Route: 048
     Dates: start: 20121012

REACTIONS (1)
  - Death [Fatal]
